FAERS Safety Report 8372831-7 (Version None)
Quarter: 2012Q2

REPORT INFORMATION
  Report Type: 
  Country: None (occurrence: None)
  Receive Date: 20120521
  Receipt Date: 20120510
  Transmission Date: 20120825
  Serious: Yes (Hospitalization)
  Sender: FDA-Public Use
  Company Number: US-VERTEX PHARMACEUTICALS INC.-AE-2012-006491

PATIENT
  Sex: Female

DRUGS (7)
  1. INCIVEK [Suspect]
     Indication: HEPATITIS C
     Route: 048
     Dates: end: 20120504
  2. RIBAVIRIN [Concomitant]
     Dates: start: 20120510
  3. RIBAVIRIN [Concomitant]
     Indication: HEPATITIS C
     Dates: end: 20120504
  4. RIBAVIRIN [Concomitant]
     Dates: start: 20120506
  5. PEGASYS [Concomitant]
     Dates: start: 20120506
  6. INCIVEK [Suspect]
     Route: 048
     Dates: start: 20120506
  7. PEGASYS [Concomitant]
     Indication: HEPATITIS C
     Dates: end: 20120504

REACTIONS (5)
  - HAEMOGLOBIN DECREASED [None]
  - CHEST PAIN [None]
  - DIARRHOEA [None]
  - DEHYDRATION [None]
  - COUGH [None]
